FAERS Safety Report 20789394 (Version 1)
Quarter: 2022Q2

REPORT INFORMATION
  Report Type: Spontaneous
  Country: US (occurrence: None)
  Receive Date: 20220504
  Receipt Date: 20220504
  Transmission Date: 20220721
  Serious: Yes (Hospitalization, Disabling)
  Sender: FDA-Public Use
  Company Number: None

PATIENT
  Age: 69 Year
  Sex: Female
  Weight: 66.6 kg

DRUGS (10)
  1. REPATHA [Suspect]
     Active Substance: EVOLOCUMAB
     Indication: Blood cholesterol increased
     Dosage: OTHER ROUTE : INJECTION;?
     Route: 050
  2. ASPIRIN [Concomitant]
     Active Substance: ASPIRIN
  3. POTASSIUM [Concomitant]
     Active Substance: POTASSIUM
  4. VITAMIN D [Concomitant]
     Active Substance: VITAMIN D NOS
  5. FELODIPINE [Concomitant]
     Active Substance: FELODIPINE
  6. hydrochlorthiazole [Concomitant]
  7. losarton [Concomitant]
  8. LEVOTHYROXINE [Concomitant]
     Active Substance: LEVOTHYROXINE
  9. VITAMIN C [Concomitant]
     Active Substance: ASCORBIC ACID
  10. ECHINACEA [Concomitant]
     Active Substance: ECHINACEA, UNSPECIFIED

REACTIONS (8)
  - Influenza like illness [None]
  - Fatigue [None]
  - Nausea [None]
  - Pain in extremity [None]
  - Back pain [None]
  - Dehydration [None]
  - Asthenia [None]
  - Viral infection [None]

NARRATIVE: CASE EVENT DATE: 20211127
